FAERS Safety Report 6220013-7 (Version None)
Quarter: 2009Q2

REPORT INFORMATION
  Report Type: 
  Country: None (occurrence: None)
  Receive Date: 20090609
  Receipt Date: 20090601
  Transmission Date: 20091009
  Serious: No
  Sender: FDA-Public Use
  Company Number: US-B.I. PHARMACEUTICALS,INC./RIDGEFIELD-2009-BP-06743BP

PATIENT
  Sex: Female

DRUGS (13)
  1. SPIRIVA [Suspect]
     Indication: ASTHMA
     Dosage: 18MCG
     Route: 055
  2. SPIRIVA [Suspect]
     Indication: CHRONIC OBSTRUCTIVE PULMONARY DISEASE
  3. PROAIR HFA [Concomitant]
     Route: 055
  4. ATROVENT HFA [Concomitant]
     Route: 055
  5. SYMBICORT INH [Concomitant]
     Route: 055
  6. NEXIUM [Concomitant]
     Indication: HIATUS HERNIA
     Route: 048
  7. ACYCLOVIR [Concomitant]
     Indication: HERPES ZOSTER
     Route: 048
  8. XANAX [Concomitant]
     Indication: ANXIETY
     Route: 048
  9. AMBIEN CR [Concomitant]
     Indication: INSOMNIA
     Route: 048
  10. SINGULAIR [Concomitant]
     Indication: CHRONIC OBSTRUCTIVE PULMONARY DISEASE
     Route: 048
  11. SINGULAIR [Concomitant]
     Indication: ASTHMA
  12. MEGESTROL ACETATE [Concomitant]
     Indication: WEIGHT DECREASED
     Route: 048
  13. OXYCODONE [Concomitant]
     Indication: HERPES ZOSTER
     Route: 048

REACTIONS (2)
  - EYE PAIN [None]
  - GLAUCOMA [None]
